FAERS Safety Report 12914013 (Version 2)
Quarter: 2017Q1

REPORT INFORMATION
  Report Type: Spontaneous
  Country: CA (occurrence: CA)
  Receive Date: 20161105
  Receipt Date: 20170110
  Transmission Date: 20170428
  Serious: Yes (Hospitalization, Disabling, Other)
  Sender: FDA-Public Use
  Company Number: CA-TEVA-709839ACC

PATIENT
  Sex: Female
  Weight: 37.68 kg

DRUGS (12)
  1. ACTONEL [Suspect]
     Active Substance: RISEDRONATE SODIUM
     Indication: BODY MASS INDEX DECREASED
     Dosage: 70 MILLIGRAM DAILY;
     Dates: start: 201506, end: 201609
  2. ACTONEL [Suspect]
     Active Substance: RISEDRONATE SODIUM
     Indication: MALNUTRITION
     Route: 048
     Dates: start: 2012, end: 2016
  3. VENLAFAXINE [Concomitant]
     Active Substance: VENLAFAXINE HYDROCHLORIDE
  4. GLUCOSAMINE [Concomitant]
     Active Substance: GLUCOSAMINE
  5. VITAMIN D [Concomitant]
     Active Substance: CHOLECALCIFEROL
     Indication: OSTEOPOROSIS
     Dosage: 2000 IU (INTERNATIONAL UNIT) DAILY;
     Route: 048
     Dates: start: 2012
  6. MIRTAZAPINE. [Concomitant]
     Active Substance: MIRTAZAPINE
     Indication: AFFECTIVE DISORDER
     Dosage: 30 MILLIGRAM DAILY;
     Route: 048
     Dates: start: 2015
  7. CENTRUM [Concomitant]
     Active Substance: VITAMINS
  8. CODEINE [Concomitant]
     Active Substance: CODEINE
  9. MIRTAZAPINE. [Concomitant]
     Active Substance: MIRTAZAPINE
     Indication: APPETITE DISORDER
  10. VITAMIN B12 [Concomitant]
     Active Substance: CYANOCOBALAMIN
     Indication: VITAMIN B12 DECREASED
     Dosage: 33.3333 MILLIGRAM DAILY;
     Route: 030
     Dates: start: 2015
  11. FLUCONAZOLE. [Concomitant]
     Active Substance: FLUCONAZOLE
  12. CALCIUM [Concomitant]
     Active Substance: CALCIUM
     Indication: OSTEOPOROSIS
     Dosage: 1000 MILLIGRAM DAILY;
     Dates: start: 2012

REACTIONS (8)
  - Gingival recession [Unknown]
  - Tooth infection [Unknown]
  - Dental caries [Unknown]
  - Osteonecrosis of jaw [Recovered/Resolved]
  - Swelling [Unknown]
  - Bone loss [Unknown]
  - Treatment noncompliance [Unknown]
  - Tooth disorder [Not Recovered/Not Resolved]

NARRATIVE: CASE EVENT DATE: 2015
